FAERS Safety Report 4334851-9 (Version None)
Quarter: 2004Q2

REPORT INFORMATION
  Report Type: 
  Country: None (occurrence: None)
  Receive Date: 20040405
  Receipt Date: 20040325
  Transmission Date: 20050107
  Serious: Yes (Life-Threatening)
  Sender: FDA-Public Use
  Company Number: 200410928GDS

PATIENT
  Age: 69 Year
  Sex: Male

DRUGS (4)
  1. MOXIFLOXACIN HCL [Suspect]
     Indication: PNEUMONIA
     Dosage: 400 MG, TOTAL DAILY, ORAL
     Route: 048
     Dates: start: 20040220, end: 20040226
  2. CEFTRIAXONE [Suspect]
     Indication: PNEUMONIA
     Dosage: 1 G, TOTAL DAILY, INTRAMUSCULAR
     Route: 030
     Dates: start: 20040223, end: 20040225
  3. AMIODARONE HCL [Concomitant]
  4. ASPIRIN [Concomitant]

REACTIONS (3)
  - ARTHRALGIA [None]
  - OEDEMA PERIPHERAL [None]
  - PETECHIAE [None]
